FAERS Safety Report 6645910-X (Version None)
Quarter: 2010Q1

REPORT INFORMATION
  Report Type: 
  Country: None (occurrence: None)
  Receive Date: 20100323
  Receipt Date: 20100312
  Transmission Date: 20100710
  Serious: Yes (Hospitalization, Other)
  Sender: FDA-Public Use
  Company Number: PHHY2010GB03552

PATIENT
  Sex: Male

DRUGS (2)
  1. CLOZARIL [Suspect]
     Indication: SCHIZOPHRENIA
     Dosage: 425 MG/DAY
     Route: 048
     Dates: start: 19981116
  2. METFORMIN HCL [Concomitant]
     Indication: DIABETES MELLITUS
     Dosage: 500 MG/DAY
     Route: 048

REACTIONS (8)
  - DIABETES MELLITUS [None]
  - FAECES DISCOLOURED [None]
  - FATIGUE [None]
  - HEAD INJURY [None]
  - HELICOBACTER INFECTION [None]
  - HYPOPHAGIA [None]
  - INTESTINAL OBSTRUCTION [None]
  - VOMITING [None]
